FAERS Safety Report 8796062 (Version 2)
Quarter: 2012Q4

REPORT INFORMATION
  Report Type: 
  Country: GT (occurrence: GT)
  Receive Date: 20120919
  Receipt Date: 20120921
  Transmission Date: 20130627
  Serious: Yes (Other)
  Sender: FDA-Public Use
  Company Number: GT-ASTRAZENECA-2012SE71552

PATIENT
  Sex: Male

DRUGS (5)
  1. NEXIUM [Suspect]
     Indication: PROPHYLAXIS AGAINST GASTROINTESTINAL ULCER
     Route: 042
  2. CEFTRIAXONE [Concomitant]
     Route: 042
  3. PLITICAN [Concomitant]
  4. HYDROCORTISONE [Concomitant]
  5. VALPROIC ACID [Concomitant]

REACTIONS (1)
  - Atrioventricular block second degree [Recovering/Resolving]
